FAERS Safety Report 8669166 (Version 3)
Quarter: 2013Q1

REPORT INFORMATION
  Report Type: Report from Study
  Country: US (occurrence: US)
  Receive Date: 20120717
  Receipt Date: 20130321
  Transmission Date: 20140127
  Serious: Yes (Congenital Anomaly)
  Sender: FDA-Public Use
  Company Number: US-GILEAD-2012-0058033

PATIENT
  Sex: Male

DRUGS (8)
  1. EMTRICITABINE/TENOFOVIR DISOPROXIL FUMARATE [Suspect]
     Indication: HIV INFECTION
     Dosage: 1 DF, QD
     Route: 064
     Dates: start: 20111101, end: 20120611
  2. EMTRICITABINE/TENOFOVIR DISOPROXIL FUMARATE [Suspect]
     Dosage: UNK
  3. LOPINAVIR W/RITONAVIR [Suspect]
     Indication: HIV INFECTION
     Dosage: 4 DF, QD
     Route: 064
     Dates: start: 20120112, end: 20120611
  4. LOPINAVIR W/RITONAVIR [Suspect]
     Dosage: 6 DF, QD
     Route: 064
     Dates: start: 20111101, end: 20120112
  5. ZIDOVUDINE [Suspect]
     Indication: HIV INFECTION
     Dosage: 2 MG/KG, Q1HR
     Route: 064
     Dates: start: 20120611, end: 20120611
  6. ZIDOVUDINE [Suspect]
     Dosage: 1 MG/KG, Q1HR
     Route: 064
     Dates: start: 20120611, end: 20120611
  7. LOSARTAN [Suspect]
     Indication: HYPERTENSION
     Route: 064
  8. TRIMETHOPRIM SULFAMETHOXAZOLE [Suspect]
     Indication: PRODUCT USED FOR UNKNOWN INDICATION
     Route: 064

REACTIONS (1)
  - Cleft lip and palate [Unknown]
